FAERS Safety Report 5309853-6 (Version None)
Quarter: 2007Q2

REPORT INFORMATION
  Report Type: 
  Country: None (occurrence: None)
  Receive Date: 20070427
  Receipt Date: 20070417
  Transmission Date: 20071010
  Serious: Yes (Hospitalization)
  Sender: FDA-Public Use
  Company Number: JP-ROCHE-486866

PATIENT
  Age: 4 Year
  Sex: Female
  Weight: 15 kg

DRUGS (5)
  1. TAMIFLU [Suspect]
     Indication: INFLUENZA
     Dosage: DOSE FORM:DRY SYRUP
     Route: 048
     Dates: start: 20070304, end: 20070304
  2. MUCODYNE [Concomitant]
     Dosage: DOSE FORM: FINE GRANULE
     Route: 048
     Dates: start: 20070303, end: 20070313
  3. TELGIN G [Concomitant]
     Dosage: GENERIC REPORTED AS CLEMASTINE FUMARATE
     Route: 048
     Dates: start: 20070303, end: 20070313
  4. FLOMOX [Concomitant]
     Dosage: GENERIC REPORTED AS CEFCAPENE PIVOXIL HYDROCHLORIDE
     Route: 048
     Dates: start: 20070307, end: 20070312
  5. PULSMARIN A [Concomitant]
     Route: 048
     Dates: start: 20070303, end: 20070313

REACTIONS (1)
  - ABNORMAL BEHAVIOUR [None]
